FAERS Safety Report 23440074 (Version 1)
Quarter: 2024Q1

REPORT INFORMATION
  Report Type: Spontaneous
  Country: CN (occurrence: CN)
  Receive Date: 20240124
  Receipt Date: 20240124
  Transmission Date: 20240410
  Serious: Yes (Hospitalization)
  Sender: FDA-Public Use
  Company Number: CN-Merck Healthcare KGaA-2024002641

PATIENT
  Age: 69 Year
  Sex: Male

DRUGS (1)
  1. ERBITUX [Suspect]
     Active Substance: CETUXIMAB
     Indication: Rectal cancer
     Dosage: 700 MG, CYCLICAL (1 EVERY 21 DAY)
     Route: 041
     Dates: start: 20240111, end: 20240111

REACTIONS (1)
  - Temperature intolerance [Recovering/Resolving]

NARRATIVE: CASE EVENT DATE: 20240111
